FAERS Safety Report 8218379-1 (Version None)
Quarter: 2012Q1

REPORT INFORMATION
  Report Type: 
  Country: None (occurrence: None)
  Receive Date: 20120319
  Receipt Date: 20110816
  Transmission Date: 20120608
  Serious: Yes (Hospitalization)
  Sender: FDA-Public Use
  Company Number: NL-GLAXOSMITHKLINE-B0738924A

PATIENT
  Sex: Male

DRUGS (3)
  1. ASCAL [Concomitant]
     Indication: TRANSIENT ISCHAEMIC ATTACK
     Dosage: 80MG PER DAY
     Route: 048
     Dates: start: 19950101
  2. VOTRIENT [Suspect]
     Indication: NEOPLASM MALIGNANT
     Route: 048
     Dates: start: 20110706
  3. DOCETAXEL [Suspect]
     Indication: NEOPLASM MALIGNANT
     Route: 042
     Dates: start: 20110705

REACTIONS (1)
  - MALAISE [None]
